FAERS Safety Report 8450232-0 (Version None)
Quarter: 2012Q2

REPORT INFORMATION
  Report Type: 
  Country: None (occurrence: None)
  Receive Date: 20120620
  Receipt Date: 20120614
  Transmission Date: 20120825
  Serious: Yes (Death, Hospitalization)
  Sender: FDA-Public Use
  Company Number: US-CELGENEUS-163-21880-12062249

PATIENT
  Sex: Male
  Weight: 86.26 kg

DRUGS (1)
  1. REVLIMID [Suspect]
     Indication: MYELODYSPLASTIC SYNDROME
     Dosage: 2.5 MILLIGRAM
     Route: 048
     Dates: start: 20120605

REACTIONS (4)
  - FLUID RETENTION [None]
  - CONSCIOUSNESS FLUCTUATING [None]
  - RESPIRATORY DISTRESS [None]
  - PLATELET COUNT DECREASED [None]
